FAERS Safety Report 5075346-7 (Version None)
Quarter: 2006Q3

REPORT INFORMATION
  Report Type: 
  Country: None (occurrence: None)
  Receive Date: 20060809
  Receipt Date: 20051102
  Transmission Date: 20061208
  Serious: No
  Sender: FDA-Public Use
  Company Number: US-AMGEN-KDL156606

PATIENT
  Sex: Female
  Weight: 62.2 kg

DRUGS (6)
  1. PROCRIT [Suspect]
     Indication: ANAEMIA
     Route: 058
  2. CIPRO [Concomitant]
  3. PREVACID [Concomitant]
  4. CARAFATE [Concomitant]
  5. COUMADIN [Concomitant]
  6. ZETIA [Concomitant]

REACTIONS (2)
  - INJECTION SITE PAIN [None]
  - MUSCLE SPASMS [None]
